FAERS Safety Report 14683911 (Version 2)
Quarter: 2018Q2

REPORT INFORMATION
  Report Type: Spontaneous
  Country: NL (occurrence: NL)
  Receive Date: 20180327
  Receipt Date: 20180406
  Transmission Date: 20180711
  Serious: Yes (Hospitalization)
  Sender: FDA-Public Use
  Company Number: NL-AUROBINDO-AUR-APL-2018-016349

PATIENT
  Age: 29 Year
  Sex: Male
  Weight: 80 kg

DRUGS (3)
  1. SULFASALAZINE. [Suspect]
     Active Substance: SULFASALAZINE
     Indication: RHEUMATOID ARTHRITIS
     Dosage: 2DD2
     Route: 065
     Dates: start: 20150701, end: 20160901
  2. OMEPRAZOLE. [Suspect]
     Active Substance: OMEPRAZOLE
     Indication: ARTHRITIS REACTIVE
     Dosage: 1 DOSAGE FORM
     Route: 065
     Dates: start: 20150701, end: 20160901
  3. PREDNISOLONE. [Suspect]
     Active Substance: PREDNISOLONE
     Indication: ARTHRITIS REACTIVE
     Dosage: 30 - 5 MG
     Route: 065
     Dates: start: 20150701, end: 20160901

REACTIONS (5)
  - Headache [Recovered/Resolved]
  - Daydreaming [Recovered/Resolved]
  - Restlessness [Recovered/Resolved]
  - Tachycardia [Recovered/Resolved]
  - Vomiting [Recovered/Resolved]

NARRATIVE: CASE EVENT DATE: 20170701
